FAERS Safety Report 5773346-2 (Version None)
Quarter: 2008Q2

REPORT INFORMATION
  Report Type: 
  Country: None (occurrence: None)
  Receive Date: 20080616
  Receipt Date: 20080606
  Transmission Date: 20081010
  Serious: Yes (Hospitalization, Other)
  Sender: FDA-Public Use
  Company Number: PHHY2008CA09638

PATIENT
  Sex: Female

DRUGS (5)
  1. EXELON [Suspect]
     Indication: DEMENTIA ALZHEIMER'S TYPE
     Dosage: 4.5 MG, BID
     Route: 048
     Dates: start: 20080103
  2. SERAX [Concomitant]
     Dosage: 10 MG, QHS
  3. ZOCOR [Concomitant]
     Dosage: 20 MG/DAY
  4. ASAPHEN [Concomitant]
     Dosage: 325 MG/DAY
  5. SERC [Concomitant]
     Dosage: 16 MG, HALF TABLET, TID

REACTIONS (7)
  - AGGRESSION [None]
  - BALANCE DISORDER [None]
  - CONFUSIONAL STATE [None]
  - DELIRIUM TREMENS [None]
  - FALL [None]
  - GENERAL PHYSICAL HEALTH DETERIORATION [None]
  - TREMOR [None]
